FAERS Safety Report 23751312 (Version 1)
Quarter: 2024Q2

REPORT INFORMATION
  Report Type: Report from Study
  Country: CA (occurrence: CA)
  Receive Date: 20240417
  Receipt Date: 20240417
  Transmission Date: 20240716
  Serious: Yes (Other)
  Sender: FDA-Public Use
  Company Number: None

PATIENT
  Sex: Male

DRUGS (5)
  1. ROSUVASTATIN CALCIUM [Suspect]
     Active Substance: ROSUVASTATIN CALCIUM
     Indication: Product used for unknown indication
     Route: 065
  2. OCRELIZUMAB [Suspect]
     Active Substance: OCRELIZUMAB
     Indication: Relapsing-remitting multiple sclerosis
     Dosage: 1 EVERY 14 DAYS
     Route: 042
  3. CELECOXIB [Concomitant]
     Active Substance: CELECOXIB
     Dosage: 2 EVERY 1 DAYS
     Route: 065
  4. EZETIMIBE [Concomitant]
     Active Substance: EZETIMIBE
  5. PREGABALIN [Concomitant]
     Active Substance: PREGABALIN

REACTIONS (4)
  - Blindness unilateral [Not Recovered/Not Resolved]
  - Fatigue [Not Recovered/Not Resolved]
  - Myalgia [Not Recovered/Not Resolved]
  - Osteoarthritis [Not Recovered/Not Resolved]
